FAERS Safety Report 10131296 (Version 1)
Quarter: 2014Q2

REPORT INFORMATION
  Report Type: Spontaneous
  Country: US (occurrence: US)
  Receive Date: 20140428
  Receipt Date: 20140428
  Transmission Date: 20141212
  Serious: No
  Sender: FDA-Public Use
  Company Number: US-GLAXOSMITHKLINE-A1043234A

PATIENT
  Sex: 0

DRUGS (2)
  1. ZOFRAN [Suspect]
     Indication: PRODUCT USED FOR UNKNOWN INDICATION
     Route: 042
  2. PROPOFOL [Suspect]
     Indication: ANAESTHESIA
     Route: 042

REACTIONS (1)
  - Malaise [Unknown]
